FAERS Safety Report 11553321 (Version 3)
Quarter: 2016Q1

REPORT INFORMATION
  Report Type: Spontaneous
  Country: GB (occurrence: GB)
  Receive Date: 20150925
  Receipt Date: 20160212
  Transmission Date: 20160525
  Serious: Yes (Hospitalization, Other)
  Sender: FDA-Public Use
  Company Number: GB-009507513-1509GBR009360

PATIENT
  Sex: Male

DRUGS (3)
  1. ZOCOR [Suspect]
     Active Substance: SIMVASTATIN
     Indication: PROPHYLAXIS
     Dosage: 40 MG, QD
     Route: 048
     Dates: start: 20040726
  2. TAMSULOSIN HYDROCHLORIDE. [Concomitant]
     Active Substance: TAMSULOSIN HYDROCHLORIDE
     Indication: PROSTATISM
     Dosage: 400 MICROGRAM, QD
     Dates: start: 20071010
  3. ATENOLOL. [Concomitant]
     Active Substance: ATENOLOL
     Indication: HYPERTENSION
     Dosage: 25 MG, QD
     Dates: start: 20020513

REACTIONS (2)
  - Thrombosis [Recovered/Resolved]
  - Muscle spasms [Recovered/Resolved]

NARRATIVE: CASE EVENT DATE: 20120808
